FAERS Safety Report 25183557 (Version 1)
Quarter: 2025Q2

REPORT INFORMATION
  Report Type: Spontaneous
  Country: JP (occurrence: JP)
  Receive Date: 20250410
  Receipt Date: 20250410
  Transmission Date: 20250716
  Serious: Yes (Other)
  Sender: MERCK SHARP AND DOHME
  Company Number: JP-009507513-2273465

PATIENT
  Age: 68 Year
  Sex: Male

DRUGS (3)
  1. KEYTRUDA [Suspect]
     Active Substance: PEMBROLIZUMAB
     Route: 041
  2. PEMETREXED [Concomitant]
     Active Substance: PEMETREXED
  3. CISPLATIN [Concomitant]
     Active Substance: CISPLATIN

REACTIONS (2)
  - Myelosuppression [Unknown]
  - Rash [Unknown]
